FAERS Safety Report 7550792-8 (Version None)
Quarter: 2011Q2

REPORT INFORMATION
  Report Type: 
  Country: None (occurrence: None)
  Receive Date: 20110616
  Receipt Date: 20110601
  Transmission Date: 20111010
  Serious: Yes (Death, Hospitalization, Other)
  Sender: FDA-Public Use
  Company Number: US-JNJFOC-20071202395

PATIENT
  Sex: Male
  Weight: 81.19 kg

DRUGS (15)
  1. ALLOPURINOL [Concomitant]
  2. MERCAPTOPURINE [Suspect]
     Route: 048
  3. MERCAPTOPURINE [Suspect]
     Route: 048
     Dates: start: 20050201
  4. MESALAMINE [Concomitant]
  5. AMBIEN [Concomitant]
  6. BENTYL [Concomitant]
  7. REMICADE [Suspect]
     Indication: CROHN'S DISEASE
     Dosage: STARTED IN OCT OR NOV-2005
     Route: 042
     Dates: start: 20051001
  8. ZOLOFT [Concomitant]
  9. REMICADE [Suspect]
     Dosage: ONCE EVERY 6 TO 7 WEEKS
     Route: 042
     Dates: end: 20071120
  10. WELLBUTRIN [Concomitant]
  11. CLARITIN [Concomitant]
  12. PROTONIX [Concomitant]
  13. STEROIDS NOS [Concomitant]
  14. DOXYCYCLINE [Concomitant]
  15. MERCAPTOPURINE [Suspect]
     Indication: CROHN'S DISEASE
     Route: 048

REACTIONS (5)
  - RENAL FAILURE [None]
  - SINUS DISORDER [None]
  - MECHANICAL VENTILATION [None]
  - HEPATOSPLENIC T-CELL LYMPHOMA [None]
  - COLLAPSE OF LUNG [None]
